FAERS Safety Report 9661111 (Version 2)
Quarter: 2013Q4

REPORT INFORMATION
  Report Type: Spontaneous
  Country: CA (occurrence: None)
  Receive Date: 20131030
  Receipt Date: 20131106
  Transmission Date: 20140711
  Serious: Yes (Death)
  Sender: FDA-Public Use
  Company Number: UTC-039489

PATIENT
  Age: 72 Year
  Sex: Male

DRUGS (1)
  1. REMODULIN (10MILLIGRAM/MILLILITRS, INJECTION FOR INFUSION) (TREPROSTINIL SODIUM) [Suspect]
     Indication: PULMONARY ARTERIAL HYPERTENSION
     Route: 058
     Dates: start: 20130129

REACTIONS (4)
  - Death [None]
  - Right ventricular failure [None]
  - Pulmonary arterial hypertension [None]
  - Condition aggravated [None]
